FAERS Safety Report 17616331 (Version 1)
Quarter: 2020Q2

REPORT INFORMATION
  Report Type: Spontaneous
  Country: AT (occurrence: AT)
  Receive Date: 20200402
  Receipt Date: 20200402
  Transmission Date: 20200713
  Serious: Yes (Death, Other)
  Sender: FDA-Public Use
  Company Number: AT-PFIZER INC-2020132202

PATIENT
  Age: 52 Year
  Sex: Female

DRUGS (13)
  1. METHYLPREDNISOLONE SODIUM SUCCINATE. [Suspect]
     Active Substance: METHYLPREDNISOLONE SODIUM SUCCINATE
     Dosage: 1 G, 1X/DAY
     Route: 042
  2. METRONIDAZOLE HCL [Concomitant]
     Active Substance: METRONIDAZOLE HYDROCHLORIDE
     Indication: EVIDENCE BASED TREATMENT
     Dosage: UNK
  3. RIFAMPICIN [Concomitant]
     Active Substance: RIFAMPIN
     Indication: EVIDENCE BASED TREATMENT
     Dosage: UNK
  4. METRONIDAZOLE HCL [Concomitant]
     Active Substance: METRONIDAZOLE HYDROCHLORIDE
     Indication: ANTIBIOTIC THERAPY
  5. ACETAZOLAMIDE SODIUM. [Concomitant]
     Active Substance: ACETAZOLAMIDE SODIUM
     Indication: ENCEPHALITIS
     Dosage: 250 MG, 2X/DAY (HYPERTONIC SALINE)
     Route: 042
  6. MANNITOL. [Concomitant]
     Active Substance: MANNITOL
     Indication: ENCEPHALITIS
     Dosage: 125 ML, 4X/DAY
     Route: 042
  7. DEXMEDETOMIDINE. [Concomitant]
     Active Substance: DEXMEDETOMIDINE
     Indication: SEDATIVE THERAPY
     Dosage: UNK
  8. LORAZEPAM. [Concomitant]
     Active Substance: LORAZEPAM
     Indication: SEDATIVE THERAPY
     Dosage: UNK
  9. CEFTRIAXONE. [Concomitant]
     Active Substance: CEFTRIAXONE
     Indication: ANTIBIOTIC THERAPY
  10. PROPOFOL. [Concomitant]
     Active Substance: PROPOFOL
     Indication: SEDATIVE THERAPY
     Dosage: UNK
  11. RIFAMPICIN [Concomitant]
     Active Substance: RIFAMPIN
     Indication: ANTIBIOTIC THERAPY
  12. METHYLPREDNISOLONE SODIUM SUCCINATE. [Suspect]
     Active Substance: METHYLPREDNISOLONE SODIUM SUCCINATE
     Indication: ENCEPHALITIS
     Dosage: 500 MG, 1X/DAY (HIGH-DOSE)
     Route: 042
  13. CEFTRIAXONE. [Concomitant]
     Active Substance: CEFTRIAXONE
     Indication: EVIDENCE BASED TREATMENT
     Dosage: UNK

REACTIONS (1)
  - Drug ineffective [Fatal]
